FAERS Safety Report 12197065 (Version 1)
Quarter: 2016Q1

REPORT INFORMATION
  Report Type: Report from Study
  Country: US (occurrence: US)
  Receive Date: 20160321
  Receipt Date: 20160321
  Transmission Date: 20160526
  Serious: Yes (Other)
  Sender: FDA-Public Use
  Company Number: US-BAXTER-2016BAX013669

PATIENT
  Age: 48 Year
  Sex: Male

DRUGS (9)
  1. DEXTROSE. [Concomitant]
     Active Substance: DEXTROSE
     Indication: DEHYDRATION
     Route: 065
  2. CYCLOPHOSPHAMIDE FOR INJECTION, USP [Suspect]
     Active Substance: CYCLOPHOSPHAMIDE
     Indication: ADULT T-CELL LYMPHOMA/LEUKAEMIA
     Dosage: DAY 1,2,3
     Route: 042
  3. HYDROXYUREA. [Concomitant]
     Active Substance: HYDROXYUREA
     Indication: ADULT T-CELL LYMPHOMA/LEUKAEMIA
     Route: 065
  4. DEXTROSE. [Concomitant]
     Active Substance: DEXTROSE
     Route: 065
  5. DEXTROSE. [Concomitant]
     Active Substance: DEXTROSE
     Route: 065
  6. FLUDARABINE [Suspect]
     Active Substance: FLUDARABINE PHOSPHATE
     Indication: ADULT T-CELL LYMPHOMA/LEUKAEMIA
     Dosage: DAY 1,2,3
     Route: 042
  7. SALINE [Concomitant]
     Indication: DEHYDRATION
     Route: 065
  8. SALINE [Concomitant]
     Route: 065
  9. SALINE [Concomitant]
     Route: 065

REACTIONS (1)
  - Disease progression [Unknown]
